FAERS Safety Report 8039305-4 (Version None)
Quarter: 2012Q1

REPORT INFORMATION
  Report Type: 
  Country: None (occurrence: None)
  Receive Date: 20120111
  Receipt Date: 20111216
  Transmission Date: 20120608
  Serious: No
  Sender: FDA-Public Use
  Company Number: US-AMGEN-USASP2011057685

PATIENT
  Age: 54 Year
  Sex: Male
  Weight: 83.9 kg

DRUGS (1)
  1. ENBREL [Suspect]
     Indication: RHEUMATOID ARTHRITIS
     Dosage: 50 MG, QWK
     Route: 058
     Dates: start: 20060401

REACTIONS (11)
  - INJECTION SITE PAIN [None]
  - TONGUE NEOPLASM [None]
  - MALAISE [None]
  - RHEUMATOID ARTHRITIS [None]
  - NASOPHARYNGITIS [None]
  - INJECTION SITE ERYTHEMA [None]
  - LICHEN PLANUS [None]
  - MOUTH ULCERATION [None]
  - ORAL NEOPLASM [None]
  - INJECTION SITE RASH [None]
  - INJECTION SITE MASS [None]
